FAERS Safety Report 6515454-4 (Version None)
Quarter: 2009Q4

REPORT INFORMATION
  Report Type: 
  Country: None (occurrence: None)
  Receive Date: 20091223
  Receipt Date: 20091215
  Transmission Date: 20100525
  Serious: Yes (Hospitalization)
  Sender: FDA-Public Use
  Company Number: PHEH2009US14109

PATIENT
  Sex: Male
  Weight: 65.9 kg

DRUGS (2)
  1. EXJADE [Suspect]
     Indication: HAEMATOPOIETIC NEOPLASM
     Dosage: 1250 MG PER DAILY
     Route: 048
  2. EXJADE [Suspect]
     Indication: LYMPHATIC DISORDER

REACTIONS (3)
  - CARDIAC FAILURE CONGESTIVE [None]
  - DYSPNOEA [None]
  - PNEUMONIA [None]
